FAERS Safety Report 7310799-2 (Version None)
Quarter: 2011Q1

REPORT INFORMATION
  Report Type: 
  Country: None (occurrence: None)
  Receive Date: 20110224
  Receipt Date: 20110222
  Transmission Date: 20110831
  Serious: Yes (Other)
  Sender: FDA-Public Use
  Company Number: DE-SANOFI-AVENTIS-2011SA010953

PATIENT
  Age: 82 Year
  Sex: Female
  Weight: 67.5 kg

DRUGS (12)
  1. DIGIMERCK [Concomitant]
     Indication: ATRIAL FIBRILLATION
     Route: 065
  2. FRAXIPARIN [Concomitant]
     Route: 065
  3. BISOPROLOL FUMARATE [Concomitant]
     Route: 065
  4. HYDROCHLOROTHIAZIDE [Concomitant]
     Route: 065
  5. MULTAQ [Suspect]
     Indication: ATRIAL FIBRILLATION
     Route: 048
     Dates: start: 20100609, end: 20110118
  6. FRAXIPARIN [Concomitant]
     Indication: ATRIAL FIBRILLATION
     Route: 065
  7. RAMIPRIL [Concomitant]
     Route: 065
  8. MARCUMAR [Concomitant]
     Route: 065
  9. MARCUMAR [Concomitant]
     Indication: ATRIAL FIBRILLATION
     Route: 065
  10. MULTAQ [Suspect]
     Route: 048
     Dates: start: 20100609, end: 20110118
  11. DIGIMERCK [Concomitant]
     Route: 065
  12. TORSEMIDE [Concomitant]
     Route: 065

REACTIONS (7)
  - BLOOD CREATININE INCREASED [None]
  - DIARRHOEA [None]
  - CHOLESTATIC LIVER INJURY [None]
  - GLOMERULAR FILTRATION RATE DECREASED [None]
  - BACK PAIN [None]
  - DECREASED APPETITE [None]
  - PANCREATITIS [None]
